FAERS Safety Report 5325556-6 (Version None)
Quarter: 2007Q2

REPORT INFORMATION
  Report Type: 
  Country: None (occurrence: None)
  Receive Date: 20070515
  Receipt Date: 20070510
  Transmission Date: 20071010
  Serious: Yes (Hospitalization)
  Sender: FDA-Public Use
  Company Number: CN-BOEHRINGER INGELHEIM PHARMACEUTICALS, INC.-2007-DE-02828GD

PATIENT

DRUGS (3)
  1. NEVIRAPINE [Suspect]
     Indication: HIV INFECTION
     Dosage: 200 MG ONCE DAILY DURING THE FIRST 2 WEEKS, FOLLOWED BY TWICE DAILY DOSE OF 200 MG
     Route: 048
  2. DIDANOSINE [Suspect]
     Indication: HIV INFECTION
  3. STAVUDINE [Suspect]
     Indication: HIV INFECTION

REACTIONS (1)
  - HERPES ZOSTER [None]
